FAERS Safety Report 10184018 (Version 2)
Quarter: 2014Q2

REPORT INFORMATION
  Report Type: Spontaneous
  Country: US (occurrence: US)
  Receive Date: 20140520
  Receipt Date: 20140520
  Transmission Date: 20141212
  Serious: No
  Sender: FDA-Public Use
  Company Number: US-MYLANLABS-2014S1004368

PATIENT
  Age: 90 Year
  Sex: Male

DRUGS (1)
  1. TOLTERODINE TARTRATE EXTENDED-RELEASE CAPSULES [Suspect]
     Indication: HYPERTONIC BLADDER
     Route: 048
     Dates: start: 20140216, end: 20140219

REACTIONS (2)
  - Drug effect decreased [Not Recovered/Not Resolved]
  - Pollakiuria [Not Recovered/Not Resolved]
